FAERS Safety Report 12212320 (Version 11)
Quarter: 2020Q2

REPORT INFORMATION
  Report Type: Spontaneous
  Country: US (occurrence: CL)
  Receive Date: 20160325
  Receipt Date: 20200529
  Transmission Date: 20200713
  Serious: Yes (Hospitalization, Other)
  Sender: FDA-Public Use
  Company Number: CL-BIOMARINAP-CL-2016-109333

PATIENT
  Age: 6 Year
  Sex: Male
  Weight: 22 kg

DRUGS (1)
  1. ALDURAZYME [Suspect]
     Active Substance: LARONIDASE
     Indication: MUCOPOLYSACCHARIDOSIS I
     Dosage: 20.3 MILLIGRAM, QW
     Route: 041
     Dates: start: 20111221

REACTIONS (14)
  - Osteitis [Recovered/Resolved]
  - Bronchitis [Recovered/Resolved]
  - Sinusitis [Recovered/Resolved]
  - Product use issue [Unknown]
  - Spinal pain [Recovered/Resolved]
  - Injection site oedema [Recovered/Resolved]
  - Hypertension [Recovering/Resolving]
  - Pain in extremity [Not Recovered/Not Resolved]
  - Gait disturbance [Recovered/Resolved]
  - Pyrexia [Recovered/Resolved]
  - Vertebral lesion [Recovered/Resolved]
  - Back pain [Unknown]
  - Elective surgery [Recovered/Resolved]
  - Spinal cord compression [Unknown]

NARRATIVE: CASE EVENT DATE: 2016
